FAERS Safety Report 5294778-5 (Version None)
Quarter: 2007Q2

REPORT INFORMATION
  Report Type: 
  Country: None (occurrence: None)
  Receive Date: 20070412
  Receipt Date: 20070403
  Transmission Date: 20071010
  Serious: Yes (Hospitalization)
  Sender: FDA-Public Use
  Company Number: FR-SOLVAY-00207001127

PATIENT
  Age: 13284 Day
  Sex: Male

DRUGS (4)
  1. PERINDOPRIL ERBUMINE [Suspect]
     Indication: ILL-DEFINED DISORDER
     Dosage: DAILY DOSE: 2 MILLIGRAM(S)
     Route: 048
     Dates: start: 20070223, end: 20070301
  2. MONOTILDIEM [Suspect]
     Indication: ILL-DEFINED DISORDER
     Dosage: DAILY DOSE: 150 MILLIGRAM(S)
     Route: 048
     Dates: start: 20070223, end: 20070302
  3. OMEPRAZOLE [Suspect]
     Indication: ILL-DEFINED DISORDER
     Dosage: DAILY DOSE: 20 MILLIGRAM(S)
     Route: 048
     Dates: start: 20070223
  4. ASPEGIC 1000 [Suspect]
     Indication: ILL-DEFINED DISORDER
     Dosage: DAILY DOSE: 1 GRAM(S)
     Route: 048
     Dates: start: 20070223

REACTIONS (2)
  - Q FEVER [None]
  - RASH PRURITIC [None]
